FAERS Safety Report 6834224-0 (Version None)
Quarter: 2010Q3

REPORT INFORMATION
  Report Type: 
  Country: None (occurrence: None)
  Receive Date: 20100712
  Receipt Date: 20070418
  Transmission Date: 20110219
  Serious: No
  Sender: FDA-Public Use
  Company Number: US-PFIZER INC-2007031991

PATIENT
  Age: 58 Year
  Sex: Male
  Weight: 82.7 kg

DRUGS (12)
  1. CHANTIX [Suspect]
     Indication: SMOKING CESSATION THERAPY
     Dosage: INTERVAL: EVERY DAY
     Dates: start: 20070401
  2. CELEBREX [Concomitant]
  3. PERCOCET [Concomitant]
  4. REGLAN [Concomitant]
  5. AVELOX [Concomitant]
  6. ALBUTEROL [Concomitant]
     Route: 055
  7. ZESTRIL [Concomitant]
  8. TOPROL-XL [Concomitant]
  9. SOMA [Concomitant]
  10. LANOXIN [Concomitant]
  11. ALDACTONE [Concomitant]
  12. LOPID [Concomitant]

REACTIONS (3)
  - GLOSSODYNIA [None]
  - OROPHARYNGEAL PAIN [None]
  - TONGUE COATED [None]
